FAERS Safety Report 8948107 (Version 1)
Quarter: 2012Q4

REPORT INFORMATION
  Report Type: 
  Country: JP (occurrence: JP)
  Receive Date: 20121204
  Receipt Date: 20121204
  Transmission Date: 20130627
  Serious: Yes (Hospitalization)
  Sender: FDA-Public Use
  Company Number: JP-GLAXOSMITHKLINE-B0848871A

PATIENT
  Age: 67 Year
  Sex: Male

DRUGS (7)
  1. LAMICTAL [Suspect]
     Indication: BIPOLAR DISORDER
     Dosage: 100MG Three times per day
     Route: 048
     Dates: start: 201107, end: 20121128
  2. SELENICA-R [Concomitant]
     Indication: BIPOLAR DISORDER
     Dosage: 400MG Twice per day
     Route: 048
     Dates: end: 20121128
  3. SELENICA-R [Concomitant]
     Indication: BIPOLAR DISORDER
     Dosage: 300MG Twice per day
     Route: 048
     Dates: start: 20121129
  4. LIMAS [Concomitant]
     Indication: BIPOLAR DISORDER
     Dosage: 800MG Twice per day
  5. ABILIFY [Concomitant]
     Indication: BIPOLAR DISORDER
     Dosage: 12MG Twice per day
     Route: 048
     Dates: end: 20121128
  6. ABILIFY [Concomitant]
     Indication: BIPOLAR DISORDER
     Dosage: 6MG Twice per day
     Route: 048
     Dates: start: 20121129
  7. SILECE [Concomitant]
     Route: 065

REACTIONS (2)
  - Depressed level of consciousness [Recovered/Resolved]
  - Hypophagia [Unknown]
